FAERS Safety Report 9418135 (Version 1)
Quarter: 2013Q3

REPORT INFORMATION
  Report Type: Spontaneous
  Country: US (occurrence: US)
  Receive Date: 20130724
  Receipt Date: 20130724
  Transmission Date: 20140515
  Serious: Yes (Other)
  Sender: FDA-Public Use
  Company Number: US-PFIZER INC-2013212755

PATIENT
  Sex: Female

DRUGS (2)
  1. LEVOXYL [Suspect]
     Dosage: UNK
  2. LEVOTHYROXINE SODIUM [Suspect]
     Dosage: UNK

REACTIONS (6)
  - Foot fracture [Unknown]
  - Asthenia [Unknown]
  - Activities of daily living impaired [Unknown]
  - Malaise [Unknown]
  - Haemoglobin decreased [Unknown]
  - Blood thyroid stimulating hormone increased [Unknown]
